FAERS Safety Report 4727488-0 (Version None)
Quarter: 2005Q3

REPORT INFORMATION
  Report Type: 
  Country: None (occurrence: None)
  Receive Date: 20050727
  Receipt Date: 20050727
  Transmission Date: 20060218
  Serious: Yes (Hospitalization)
  Sender: FDA-Public Use
  Company Number: None

PATIENT
  Age: 62 Year
  Sex: Male
  Weight: 78 kg

DRUGS (8)
  1. CEPHALEXIN [Suspect]
     Indication: PAROTITIS
  2. GOSERELIN [Concomitant]
  3. FENTANYL [Concomitant]
  4. ONDANSETRON [Concomitant]
  5. PROMETHAZINE [Concomitant]
  6. OMEPRAZOLE [Concomitant]
  7. TERAZOSIN [Concomitant]
  8. COLESTIPOL [Concomitant]

REACTIONS (4)
  - ABDOMINAL PAIN [None]
  - NAUSEA [None]
  - URINARY RETENTION [None]
  - VOMITING [None]
